FAERS Safety Report 17570328 (Version 1)
Quarter: 2020Q1

REPORT INFORMATION
  Report Type: Spontaneous
  Country: IT (occurrence: IT)
  Receive Date: 20200323
  Receipt Date: 20200323
  Transmission Date: 20200409
  Serious: No
  Sender: FDA-Public Use
  Company Number: IT-LUPIN PHARMACEUTICALS INC.-2020-01256

PATIENT
  Age: 78 Year
  Sex: Male

DRUGS (1)
  1. DOXYCYCLINE. [Suspect]
     Active Substance: DOXYCYCLINE
     Indication: CARDIAC AMYLOIDOSIS
     Dosage: 100 MILLIGRAM, BID
     Route: 065
     Dates: start: 2018

REACTIONS (2)
  - Solar dermatitis [Unknown]
  - Off label use [Unknown]

NARRATIVE: CASE EVENT DATE: 2019
